FAERS Safety Report 18875663 (Version 1)
Quarter: 2021Q1

REPORT INFORMATION
  Report Type: Spontaneous
  Country: CA (occurrence: CA)
  Receive Date: 20210210
  Receipt Date: 20210210
  Transmission Date: 20210420
  Serious: Yes (Other)
  Sender: FDA-Public Use
  Company Number: CA-TEVA-2021-CA-1876968

PATIENT
  Sex: Female

DRUGS (1)
  1. METHOTREXATE. [Suspect]
     Active Substance: METHOTREXATE
     Indication: JUVENILE IDIOPATHIC ARTHRITIS
     Dosage: 25MG
     Route: 058

REACTIONS (7)
  - Off label use [Unknown]
  - Fear-related avoidance of activities [Unknown]
  - Nausea [Unknown]
  - Abdominal pain upper [Unknown]
  - Behaviour disorder [Unknown]
  - Salivary hypersecretion [Unknown]
  - Vomiting [Unknown]
